FAERS Safety Report 7234617-6 (Version None)
Quarter: 2011Q1

REPORT INFORMATION
  Report Type: 
  Country: None (occurrence: None)
  Receive Date: 20110120
  Receipt Date: 20110110
  Transmission Date: 20110831
  Serious: Yes (Hospitalization, Other)
  Sender: FDA-Public Use
  Company Number: US-BIOGENIDEC-2010BI045222

PATIENT
  Age: 47 Year
  Sex: Male
  Weight: 92 kg

DRUGS (8)
  1. METFORMIN [Concomitant]
     Route: 048
  2. LEVOTHYROXINE [Concomitant]
     Route: 048
  3. MAGNESIUM GLYCINATE [Concomitant]
     Route: 048
  4. AVONEX [Suspect]
     Route: 030
     Dates: start: 19971201
  5. AVONEX [Suspect]
     Indication: MULTIPLE SCLEROSIS
     Route: 030
  6. MELOXICAM [Concomitant]
     Indication: PAIN
     Route: 048
  7. LYRICA [Concomitant]
     Indication: PAIN
     Route: 048
  8. AVONEX [Suspect]
     Route: 030

REACTIONS (6)
  - GRAND MAL CONVULSION [None]
  - NASOPHARYNGITIS [None]
  - COMA [None]
  - CONVULSION [None]
  - BLADDER DISORDER [None]
  - RESPIRATORY ARREST [None]
